FAERS Safety Report 8950533 (Version 1)
Quarter: 2012Q4

REPORT INFORMATION
  Report Type: Spontaneous
  Country: US (occurrence: None)
  Receive Date: 20121204
  Receipt Date: 20121204
  Transmission Date: 20130627
  Serious: No
  Sender: FDA-Public Use
  Company Number: None

PATIENT
  Age: 67 Year
  Sex: Male

DRUGS (1)
  1. BUDESONIDE/FORMOTEROL [Suspect]
     Indication: COPD
     Dosage: 2 puff(s) BID inhale
     Route: 055
     Dates: start: 20120210, end: 20120723

REACTIONS (2)
  - Myalgia [None]
  - Abnormal dreams [None]
